FAERS Safety Report 9101920 (Version 3)
Quarter: 2013Q4

REPORT INFORMATION
  Report Type: Spontaneous
  Country: GB (occurrence: GB)
  Receive Date: 20130218
  Receipt Date: 20131107
  Transmission Date: 20140711
  Serious: Yes (Life-Threatening, Hospitalization, Other)
  Sender: FDA-Public Use
  Company Number: GB-TEVA-385885ISR

PATIENT
  Age: 96 Year
  Sex: Female

DRUGS (5)
  1. NITROFURANTOIN [Suspect]
     Indication: ESCHERICHIA URINARY TRACT INFECTION
     Route: 048
     Dates: start: 20120116, end: 20120124
  2. ASPIRIN [Concomitant]
  3. OMEPRAZOLE [Concomitant]
  4. MADOPAR [Concomitant]
  5. VITAMINS NOS [Concomitant]

REACTIONS (3)
  - Urosepsis [Unknown]
  - Treatment failure [Recovered/Resolved]
  - Medication error [Unknown]
